FAERS Safety Report 24072021 (Version 1)
Quarter: 2024Q3

REPORT INFORMATION
  Report Type: Other
  Country: CN (occurrence: CN)
  Receive Date: 20240710
  Receipt Date: 20240710
  Transmission Date: 20241016
  Serious: Yes (Other)
  Sender: CHIESI
  Company Number: CN-CHIESI-2024CHF03955

PATIENT
  Age: 0 Year
  Sex: Male
  Weight: 1.17 kg

DRUGS (1)
  1. CUROSURF [Suspect]
     Active Substance: PORACTANT ALFA
     Indication: Neonatal respiratory distress syndrome
     Dosage: 240 MILLIGRAM, (1X)
     Route: 007
     Dates: start: 20240629, end: 20240629

REACTIONS (2)
  - Bradycardia neonatal [Recovering/Resolving]
  - Neonatal dyspnoea [Recovering/Resolving]

NARRATIVE: CASE EVENT DATE: 20240629
